FAERS Safety Report 7683326-8 (Version None)
Quarter: 2011Q3

REPORT INFORMATION
  Report Type: 
  Country: None (occurrence: None)
  Receive Date: 20110815
  Receipt Date: 20110804
  Transmission Date: 20111222
  Serious: Yes (Other)
  Sender: FDA-Public Use
  Company Number: US-BAYER-2010-007318

PATIENT
  Age: 17 Year
  Sex: Female
  Weight: 73 kg

DRUGS (7)
  1. OPTIVAR [Concomitant]
  2. PHENERGAN HCL [Concomitant]
  3. BENTYL [Concomitant]
  4. DICYCLOMINE [Concomitant]
     Dosage: 20 MG, TID
     Route: 048
  5. NEXIUM [Concomitant]
  6. YAZ [Suspect]
     Indication: MENSTRUATION IRREGULAR
     Dosage: UNK
     Dates: start: 20081101, end: 20091001
  7. DARVOCET [Concomitant]
     Route: 048

REACTIONS (5)
  - CHOLECYSTITIS CHRONIC [None]
  - VOMITING [None]
  - NAUSEA [None]
  - BILIARY DYSKINESIA [None]
  - CHOLECYSTECTOMY [None]
